FAERS Safety Report 5571644-9 (Version None)
Quarter: 2007Q4

REPORT INFORMATION
  Report Type: 
  Country: None (occurrence: None)
  Receive Date: 20071221
  Receipt Date: 20071114
  Transmission Date: 20080405
  Serious: No
  Sender: FDA-Public Use
  Company Number: US-BRISTOL-MYERS SQUIBB COMPANY-13984448

PATIENT

DRUGS (1)
  1. SPRYCEL [Suspect]
     Dosage: REINTRODUCED AT 100 MG Q.D.

REACTIONS (1)
  - PLEURAL EFFUSION [None]
